FAERS Safety Report 15546001 (Version 1)
Quarter: 2018Q4

REPORT INFORMATION
  Report Type: Spontaneous
  Country: US (occurrence: US)
  Receive Date: 20181023
  Receipt Date: 20181023
  Transmission Date: 20190205
  Serious: No
  Sender: FDA-Public Use
  Company Number: None

PATIENT
  Age: 49 Year
  Sex: Female
  Weight: 51.75 kg

DRUGS (5)
  1. VITAMIN D [Concomitant]
     Active Substance: CHOLECALCIFEROL
  2. L LYSINE [Concomitant]
  3. THYROID SUPOORT NUTRITIONALS [Concomitant]
  4. MONOLAUREN [Concomitant]
  5. VALACYCLOVIR [Suspect]
     Active Substance: VALACYCLOVIR HYDROCHLORIDE
     Indication: EPSTEIN-BARR VIRUS INFECTION
     Dosage: ?          QUANTITY:30 TABLET(S);?
     Route: 048
     Dates: start: 20181021

REACTIONS (3)
  - Pruritus generalised [None]
  - Pruritus [None]
  - Tongue pruritus [None]

NARRATIVE: CASE EVENT DATE: 20181022
